FAERS Safety Report 4868412-X (Version None)
Quarter: 2005Q4

REPORT INFORMATION
  Report Type: 
  Country: None (occurrence: None)
  Receive Date: 20051223
  Receipt Date: 20051220
  Transmission Date: 20060501
  Serious: Yes (Life-Threatening, Hospitalization)
  Sender: FDA-Public Use
  Company Number: 13121

PATIENT
  Age: 74 Year
  Sex: Female
  Weight: 6.804 kg

DRUGS (13)
  1. CYTARABINE [Suspect]
     Indication: MYELOID LEUKAEMIA
     Dosage: 10 MG/M2 BID SC
     Route: 058
     Dates: start: 20051005, end: 20051128
  2. TRISENOX [Suspect]
     Indication: MYELOID LEUKAEMIA
     Dosage: 1306 MG QD IV
     Route: 042
     Dates: start: 20051005, end: 20051125
  3. ATORVASTATIN CALCIUM [Concomitant]
  4. CLOTRIMAZOLE [Concomitant]
  5. PYRIDOXINE HCL [Concomitant]
  6. LOPERAMIDE [Concomitant]
  7. METOPROLOL TARTRATE [Concomitant]
  8. ACETAMINOPHEN [Concomitant]
  9. DOCUSATE SODIUM [Concomitant]
  10. SENNA [Concomitant]
  11. MAALOX FAST BLOCKER [Concomitant]
  12. DIPHENHYDRAMINE HCL [Concomitant]
  13. BIOTENE [Concomitant]

REACTIONS (1)
  - HYPOTENSION [None]
